FAERS Safety Report 9837102 (Version 2)
Quarter: 2014Q1

REPORT INFORMATION
  Report Type: Spontaneous
  Country: PT (occurrence: PT)
  Receive Date: 20140123
  Receipt Date: 20140128
  Transmission Date: 20141002
  Serious: Yes (Other)
  Sender: FDA-Public Use
  Company Number: PT-009507513-1312PRT005264

PATIENT
  Age: 53 Year
  Sex: Female
  Weight: 51 kg

DRUGS (8)
  1. IVEMEND [Suspect]
     Indication: PROPHYLAXIS OF NAUSEA AND VOMITING
     Dosage: CONCENTRATION ? 1.5 MG/ML; INFUSION RATE ? 200ML/H
     Route: 040
     Dates: start: 20131203, end: 20131203
  2. IVEMEND [Suspect]
     Indication: PREMEDICATION
     Dosage: TOTAL VOLUME OF 250 ML, 4TH AND LAST CYCLE, CYCLICAL
     Route: 042
     Dates: start: 20131220, end: 20131220
  3. DOXORUBICIN [Concomitant]
     Indication: BREAST NEOPLASM
     Dosage: 90 MG, Q21D
     Route: 042
     Dates: start: 20131022
  4. DOXORUBICIN [Concomitant]
     Indication: OVARIAN CANCER
  5. ENDOXAN [Concomitant]
     Indication: BREAST NEOPLASM
     Dosage: 900 MG, Q21D/1000MG RECONSTITUIDOS EM 50ML NACL
     Route: 042
     Dates: start: 20131022
  6. ENDOXAN [Concomitant]
     Indication: OVARIAN CANCER
  7. GRANISETRON HYDROCHLORIDE [Concomitant]
     Indication: PREMEDICATION
     Dosage: 2 MG, Q21D
     Route: 048
     Dates: start: 20131022
  8. FORTECORTIN [Concomitant]
     Indication: PREMEDICATION
     Dosage: 8 MG, Q21D
     Route: 048
     Dates: start: 20131022

REACTIONS (4)
  - Surgery [Unknown]
  - Discomfort [Unknown]
  - Injection site pain [Recovered/Resolved]
  - Infusion site pain [Unknown]
